FAERS Safety Report 23210957 (Version 1)
Quarter: 2023Q4

REPORT INFORMATION
  Report Type: Spontaneous
  Country: CN (occurrence: None)
  Receive Date: 20231121
  Receipt Date: 20231121
  Transmission Date: 20240110
  Serious: Yes (Hospitalization)
  Sender: FDA-Public Use
  Company Number: 2023A263226

PATIENT
  Age: 18565 Day
  Sex: Male
  Weight: 74 kg

DRUGS (1)
  1. ROSUVASTATIN CALCIUM [Suspect]
     Active Substance: ROSUVASTATIN CALCIUM
     Indication: Coronary artery disease
     Route: 048
     Dates: start: 20231010, end: 20231019

REACTIONS (1)
  - Liver injury [Not Recovered/Not Resolved]

NARRATIVE: CASE EVENT DATE: 20231018
